FAERS Safety Report 9170441 (Version 3)
Quarter: 2013Q1

REPORT INFORMATION
  Report Type: Spontaneous
  Country: US (occurrence: None)
  Receive Date: 20130307
  Receipt Date: 20130319
  Transmission Date: 20140127
  Serious: Yes (Hospitalization)
  Sender: FDA-Public Use
  Company Number: 2013SGN00098

PATIENT
  Age: 78 Year
  Sex: Male
  Weight: 84.4 kg

DRUGS (12)
  1. BRENTUXIMAB VEDOTIN [Suspect]
     Indication: HODGKIN^S DISEASE
     Route: 042
     Dates: start: 20121106, end: 20130131
  2. ASPIRIN [Concomitant]
  3. FLORINEF (FLUDROCORTISONE) [Concomitant]
  4. IMODIUM [Concomitant]
  5. KEPPRA [Concomitant]
  6. MIDODRINE [Concomitant]
  7. MULTIVITAMIN [Concomitant]
  8. POTASSIUM CHLORIDE [Concomitant]
  9. PROZAC [Concomitant]
  10. RITALIN [Concomitant]
  11. SANDOSTATIN [Concomitant]
  12. SIMVASTATIN [Concomitant]

REACTIONS (5)
  - Muscular weakness [None]
  - Fatigue [None]
  - Fall [None]
  - Blood albumin decreased [None]
  - Orthostatic hypotension [None]
